FAERS Safety Report 7247955-8 (Version None)
Quarter: 2011Q1

REPORT INFORMATION
  Report Type: 
  Country: None (occurrence: None)
  Receive Date: 20110127
  Receipt Date: 20110125
  Transmission Date: 20110831
  Serious: Yes (Other)
  Sender: FDA-Public Use
  Company Number: US-ABBOTT-11P-163-0700090-00

PATIENT
  Sex: Female

DRUGS (1)
  1. TRILIPIX [Suspect]
     Indication: BLOOD TRIGLYCERIDES INCREASED
     Dates: end: 20110101

REACTIONS (4)
  - JAUNDICE [None]
  - YELLOW SKIN [None]
  - HEPATIC ENZYME INCREASED [None]
  - OCULAR ICTERUS [None]
